FAERS Safety Report 4543816-3 (Version None)
Quarter: 2005Q1

REPORT INFORMATION
  Report Type: 
  Country: None (occurrence: None)
  Receive Date: 20050104
  Receipt Date: 20041129
  Transmission Date: 20050727
  Serious: Yes (Hospitalization)
  Sender: FDA-Public Use
  Company Number: JP-SOLVAY-00304004259

PATIENT
  Age: 19484 Day
  Sex: Male
  Weight: 74 kg

DRUGS (5)
  1. UFT [Concomitant]
     Indication: NEOPLASM MALIGNANT
     Dosage: DAILY DOSE: 800 MILLIGRAM(S)
     Route: 048
     Dates: start: 19980514, end: 19990407
  2. CREON [Suspect]
     Indication: PANCREATIC INSUFFICIENCY
     Dosage: DAILY DOSE: 9 GRAM(S)
     Route: 048
     Dates: start: 19980827, end: 20000601
  3. GLYBURIDE [Concomitant]
     Indication: DIABETES MELLITUS
     Dosage: DAILY DOSE: 5 MILLIGRAM(S)
     Route: 048
     Dates: start: 19980514, end: 19990602
  4. LONGES [Concomitant]
     Indication: HYPERTENSION
     Dosage: DAILY DOSE: 20 MILLIGRAM(S)
     Route: 048
     Dates: start: 19980514
  5. MEVALOTIN [Concomitant]
     Indication: HYPERLIPIDAEMIA
     Dosage: DAILY DOSE: 20 MILLIGRAM(S)
     Route: 048
     Dates: start: 19980514

REACTIONS (3)
  - BLOOD PRESSURE INCREASED [None]
  - CHOLANGITIS ACUTE [None]
  - HEART RATE INCREASED [None]
